FAERS Safety Report 9465499 (Version 2)
Quarter: 2013Q4

REPORT INFORMATION
  Report Type: Spontaneous
  Country: IT (occurrence: IT)
  Receive Date: 20130820
  Receipt Date: 20131008
  Transmission Date: 20140711
  Serious: Yes (Hospitalization)
  Sender: FDA-Public Use
  Company Number: PHHY2013IT088687

PATIENT
  Sex: Female

DRUGS (3)
  1. FEMARA [Suspect]
     Indication: BREAST CANCER
     Dosage: 2.5 MG, DAILY
     Route: 048
     Dates: start: 20050101, end: 20130806
  2. HALCION [Concomitant]
     Dosage: 0.25 MG, HALF TABLET DAILY
     Route: 048
  3. BRUFEN//IBUPROFEN [Concomitant]
     Dosage: 400 MG, AS NEEDED (ABOUT ONCE PER WEEK)
     Route: 048

REACTIONS (1)
  - Pancreatitis acute [Recovered/Resolved]
